FAERS Safety Report 13098946 (Version 1)
Quarter: 2017Q1

REPORT INFORMATION
  Report Type: Spontaneous
  Country: FR (occurrence: FR)
  Receive Date: 20170109
  Receipt Date: 20170109
  Transmission Date: 20170428
  Serious: Yes (Hospitalization)
  Sender: FDA-Public Use
  Company Number: FR-JNJFOC-20170105083

PATIENT
  Age: 73 Year
  Sex: Female

DRUGS (3)
  1. TOPALGIC [Suspect]
     Active Substance: TRAMADOL
     Indication: PAIN
     Dosage: CUMULATIVE DOSE TO FIRST REACTION: 100 MG
     Route: 048
     Dates: start: 20161206, end: 20161207
  2. IXPRIM [Suspect]
     Active Substance: ACETAMINOPHEN\TRAMADOL HYDROCHLORIDE
     Indication: PAIN
     Route: 048
     Dates: start: 20161207, end: 20161209
  3. TOPALGIC LP [Suspect]
     Active Substance: TRAMADOL
     Indication: PAIN
     Dosage: CUMULATIVE DOSE TO FIRST REACTION: 300 MG
     Route: 048
     Dates: start: 20161207, end: 20161209

REACTIONS (2)
  - Hyponatraemia [Recovered/Resolved]
  - Confusional state [Recovered/Resolved]

NARRATIVE: CASE EVENT DATE: 20161209
